FAERS Safety Report 9192611 (Version 1)
Quarter: 2013Q1

REPORT INFORMATION
  Report Type: Spontaneous
  Country: US (occurrence: US)
  Receive Date: 20130327
  Receipt Date: 20130327
  Transmission Date: 20140127
  Serious: No
  Sender: FDA-Public Use
  Company Number: US-PFIZER INC-2013099420

PATIENT
  Age: 66 Year
  Sex: Female
  Weight: 49.89 kg

DRUGS (2)
  1. CHANTIX [Suspect]
     Indication: SMOKING CESSATION THERAPY
     Dosage: 0.5 MG, 1X/DAY
     Route: 048
     Dates: start: 201302, end: 2013
  2. CHANTIX [Suspect]
     Dosage: UNK
     Route: 048
     Dates: start: 2013, end: 201303

REACTIONS (1)
  - Vomiting [Recovered/Resolved]
